FAERS Safety Report 22192863 (Version 2)
Quarter: 2023Q4

REPORT INFORMATION
  Report Type: Report from Study
  Country: US (occurrence: US)
  Receive Date: 20230410
  Receipt Date: 20231009
  Transmission Date: 20240109
  Serious: Yes (Hospitalization, Other)
  Sender: FDA-Public Use
  Company Number: US-ABBVIE-4722038

PATIENT
  Age: 56 Year
  Sex: Female

DRUGS (2)
  1. HUMIRA [Suspect]
     Active Substance: ADALIMUMAB
     Indication: Hidradenitis
     Dosage: FORM STRENGTH-40 MG?CITRATE FREE
     Route: 058
     Dates: start: 20210928, end: 20230805
  2. VIMPAT [Concomitant]
     Active Substance: LACOSAMIDE
     Indication: Seizure prophylaxis

REACTIONS (3)
  - Seizure [Recovered/Resolved]
  - Dysarthria [Unknown]
  - Hidradenitis [Unknown]

NARRATIVE: CASE EVENT DATE: 20230328
